FAERS Safety Report 14585705 (Version 1)
Quarter: 2018Q1

REPORT INFORMATION
  Report Type: Spontaneous
  Country: JP (occurrence: JP)
  Receive Date: 20180301
  Receipt Date: 20180301
  Transmission Date: 20180509
  Serious: Yes (Other)
  Sender: FDA-Public Use
  Company Number: JP-CIPLA LTD.-2018JP08691

PATIENT

DRUGS (8)
  1. DOXORUBICIN HYDROCHLORIDE. [Suspect]
     Active Substance: DOXORUBICIN HYDROCHLORIDE
     Indication: METASTASES TO LUNG
  2. GEMCITABINE [Suspect]
     Active Substance: GEMCITABINE\GEMCITABINE HYDROCHLORIDE
     Indication: UTERINE LEIOMYOSARCOMA
     Dosage: UNK, 17 CYCLES
     Route: 065
  3. PAZOPANIB [Suspect]
     Active Substance: PAZOPANIB
     Indication: METASTASES TO LUNG
     Dosage: 800 MG, PER DAY
     Route: 065
  4. PAZOPANIB [Suspect]
     Active Substance: PAZOPANIB
     Indication: UTERINE LEIOMYOSARCOMA
     Dosage: 600 MG, PER DAY
     Route: 065
  5. DOCETAXEL. [Suspect]
     Active Substance: DOCETAXEL
     Indication: METASTASES TO LUNG
  6. GEMCITABINE [Suspect]
     Active Substance: GEMCITABINE\GEMCITABINE HYDROCHLORIDE
     Indication: METASTASES TO LUNG
  7. DOXORUBICIN HYDROCHLORIDE. [Suspect]
     Active Substance: DOXORUBICIN HYDROCHLORIDE
     Indication: UTERINE LEIOMYOSARCOMA
     Dosage: UNK, 2 CYCLES
     Route: 065
  8. DOCETAXEL. [Suspect]
     Active Substance: DOCETAXEL
     Indication: UTERINE LEIOMYOSARCOMA
     Dosage: UNK, 17 CYCLES
     Route: 065

REACTIONS (4)
  - Malignant neoplasm progression [Unknown]
  - Hepatic function abnormal [Unknown]
  - Condition aggravated [Unknown]
  - Hypertension [Unknown]
